FAERS Safety Report 20961665 (Version 1)
Quarter: 2022Q2

REPORT INFORMATION
  Report Type: Spontaneous
  Country: US (occurrence: US)
  Receive Date: 20220615
  Receipt Date: 20220615
  Transmission Date: 20220721
  Serious: No
  Sender: FDA-Public Use
  Company Number: US-PFIZER INC-202200836455

PATIENT
  Age: 72 Year
  Sex: Female
  Weight: 66.22 kg

DRUGS (1)
  1. XELJANZ XR [Suspect]
     Active Substance: TOFACITINIB CITRATE
     Indication: Rheumatoid arthritis
     Dosage: 11 MG, 1X/DAY (ONCE A DAY AT BEDTIME)
     Dates: end: 202202

REACTIONS (4)
  - Off label use [Unknown]
  - Product dose omission issue [Unknown]
  - Pain [Unknown]
  - Musculoskeletal stiffness [Unknown]
